FAERS Safety Report 17101742 (Version 2)
Quarter: 2020Q4

REPORT INFORMATION
  Report Type: Report from Study
  Country: FR (occurrence: FR)
  Receive Date: 20191202
  Receipt Date: 20201125
  Transmission Date: 20210113
  Serious: Yes (Hospitalization, Other)
  Sender: FDA-Public Use
  Company Number: FR-SHIRE-FR201940977

PATIENT

DRUGS (17)
  1. TEDUGLUTIDE [Suspect]
     Active Substance: TEDUGLUTIDE
     Dosage: 2.85 MILLIGRAM (0.05 MG KG TED DAILY DOSE, 3 TED DOSES PER WEEK)
     Route: 065
     Dates: start: 20170706, end: 20170901
  2. TEDUGLUTIDE [Suspect]
     Active Substance: TEDUGLUTIDE
     Dosage: 2.85 MILLIGRAM (0.05 MG KG TED DAILY DOSE, 3 TED DOSES PER WEEK)
     Route: 065
     Dates: start: 20170706, end: 20170901
  3. TEDUGLUTIDE [Suspect]
     Active Substance: TEDUGLUTIDE
     Dosage: 2.85 MILLIGRAM (0.05 MG KG TED DAILY DOSE, 7 TED DOSES PER WEEK)
     Route: 065
     Dates: start: 20180108
  4. TEDUGLUTIDE [Suspect]
     Active Substance: TEDUGLUTIDE
     Dosage: 2.85 MILLIGRAM (0.05 MG KG TED DAILY DOSE, 7 TED DOSES PER WEEK)
     Route: 065
     Dates: start: 20180108
  5. VANCOMYCINE [VANCOMYCIN] [Concomitant]
     Active Substance: VANCOMYCIN
     Indication: DERMATITIS
     Dosage: 999.00 UNK
     Route: 042
     Dates: start: 201806, end: 201806
  6. LOPERAMIDE [Concomitant]
     Active Substance: LOPERAMIDE
     Indication: DIARRHOEA
  7. TEDUGLUTIDE [Suspect]
     Active Substance: TEDUGLUTIDE
     Indication: SHORT-BOWEL SYNDROME
     Dosage: 2.85 MILLIGRAM (0.05 MG KG TED DAILY DOSE, 7 TED DOSES PER WEEK)
     Route: 065
     Dates: start: 20160115, end: 20170706
  8. TAZOCILLINE [Concomitant]
     Active Substance: PIPERACILLIN SODIUM\TAZOBACTAM SODIUM
     Indication: DERMATITIS
     Dosage: 999.00 UNK
     Route: 042
     Dates: start: 201806, end: 201806
  9. TEDUGLUTIDE [Suspect]
     Active Substance: TEDUGLUTIDE
     Indication: SHORT-BOWEL SYNDROME
     Dosage: 2.85 MILLIGRAM (0.05 MG KG TED DAILY DOSE, 7 TED DOSES PER WEEK)
     Route: 065
     Dates: start: 20160115, end: 20170706
  10. TEDUGLUTIDE [Suspect]
     Active Substance: TEDUGLUTIDE
     Indication: SHORT-BOWEL SYNDROME
     Dosage: 2.85 MILLIGRAM (0.05 MG KG TED DAILY DOSE, 7 TED DOSES PER WEEK)
     Route: 065
     Dates: start: 20160115, end: 20170706
  11. VANCOMYCINE [VANCOMYCIN] [Concomitant]
     Active Substance: VANCOMYCIN
     Dosage: 30 MILLIGRAM/KILOGRAM, FOR 24 HRS
     Route: 042
     Dates: start: 201806, end: 201806
  12. TEDUGLUTIDE [Suspect]
     Active Substance: TEDUGLUTIDE
     Dosage: 2.85 MILLIGRAM (0.05 MG KG TED DAILY DOSE, 3 TED DOSES PER WEEK)
     Route: 065
     Dates: start: 20170706, end: 20170901
  13. TEDUGLUTIDE [Suspect]
     Active Substance: TEDUGLUTIDE
     Dosage: 2.85 MILLIGRAM (0.05 MG KG TED DAILY DOSE, 7 TED DOSES PER WEEK)
     Route: 065
     Dates: start: 20180108
  14. TEDUGLUTIDE [Suspect]
     Active Substance: TEDUGLUTIDE
     Dosage: 2.85 MILLIGRAM (0.05 MG KG TED DAILY DOSE, 7 TED DOSES PER WEEK)
     Route: 065
     Dates: start: 20180108
  15. ZYVOXID [Concomitant]
     Active Substance: LINEZOLID
     Indication: DERMATITIS
     Dosage: 999.00 UNK
     Route: 048
     Dates: start: 201806, end: 201806
  16. TEDUGLUTIDE [Suspect]
     Active Substance: TEDUGLUTIDE
     Indication: SHORT-BOWEL SYNDROME
     Dosage: 2.85 MILLIGRAM (0.05 MG KG TED DAILY DOSE, 7 TED DOSES PER WEEK)
     Route: 065
     Dates: start: 20160115, end: 20170706
  17. TEDUGLUTIDE [Suspect]
     Active Substance: TEDUGLUTIDE
     Dosage: 2.85 MILLIGRAM (0.05 MG KG TED DAILY DOSE, 3 TED DOSES PER WEEK)
     Route: 065
     Dates: start: 20170706, end: 20170901

REACTIONS (5)
  - Pulmonary embolism [Recovered/Resolved]
  - Pneumonia aspiration [Recovered/Resolved]
  - Femoral neck fracture [Recovered/Resolved]
  - General physical condition abnormal [Recovered/Resolved]
  - Device issue [Recovered/Resolved]

NARRATIVE: CASE EVENT DATE: 20170612
